FAERS Safety Report 6614224-6 (Version None)
Quarter: 2010Q1

REPORT INFORMATION
  Report Type: 
  Country: None (occurrence: None)
  Receive Date: 20100303
  Receipt Date: 20100303
  Transmission Date: 20100710
  Serious: Yes (Hospitalization)
  Sender: FDA-Public Use
  Company Number: None

PATIENT
  Age: 67 Year
  Sex: Male
  Weight: 71.2 kg

DRUGS (3)
  1. LITHIUM [Suspect]
     Indication: BIPOLAR DISORDER
     Dosage: 300 MG BID PO
     Route: 048
     Dates: start: 20041109, end: 20100219
  2. LITHIUM [Suspect]
     Indication: MANIA
     Dosage: 300 MG BID PO
     Route: 048
     Dates: start: 20041109, end: 20100219
  3. LITHIUM [Suspect]
     Indication: SCHIZOAFFECTIVE DISORDER
     Dosage: 300 MG BID PO
     Route: 048
     Dates: start: 20041109, end: 20100219

REACTIONS (8)
  - ANTIPSYCHOTIC DRUG LEVEL INCREASED [None]
  - CONFUSIONAL STATE [None]
  - DELIRIUM [None]
  - HYPOVOLAEMIA [None]
  - OVERDOSE [None]
  - PARKINSONISM [None]
  - RENAL FAILURE ACUTE [None]
  - TREMOR [None]
